FAERS Safety Report 6523446-4 (Version None)
Quarter: 2009Q4

REPORT INFORMATION
  Report Type: 
  Country: None (occurrence: None)
  Receive Date: 20091231
  Receipt Date: 20091222
  Transmission Date: 20100525
  Serious: Yes (Hospitalization)
  Sender: FDA-Public Use
  Company Number: JP-ASTRAZENECA-2009SE30134

PATIENT
  Age: 72 Year
  Sex: Female

DRUGS (4)
  1. MEROPEN [Suspect]
     Indication: MENINGITIS
     Route: 042
  2. MEROPEN [Suspect]
     Route: 042
  3. VANCOMYCIN [Concomitant]
  4. CRAVIT [Concomitant]

REACTIONS (1)
  - PYREXIA [None]
